FAERS Safety Report 13002256 (Version 1)
Quarter: 2016Q4

REPORT INFORMATION
  Report Type: Spontaneous
  Country: US (occurrence: US)
  Receive Date: 20161206
  Receipt Date: 20161206
  Transmission Date: 20170207
  Serious: Yes (Hospitalization)
  Sender: FDA-Public Use
  Company Number: PHHY2016US164683

PATIENT
  Age: 33 Year
  Sex: Male

DRUGS (1)
  1. PANTOPRAZOLE [Suspect]
     Active Substance: PANTOPRAZOLE SODIUM
     Indication: PRODUCT USED FOR UNKNOWN INDICATION
     Route: 065

REACTIONS (8)
  - Metabolic acidosis [Recovering/Resolving]
  - Acute kidney injury [Recovering/Resolving]
  - Septic shock [Recovering/Resolving]
  - Rhabdomyolysis [Recovering/Resolving]
  - Gastroenteritis salmonella [Recovering/Resolving]
  - Hypotension [Recovering/Resolving]
  - Pneumonia [Recovering/Resolving]
  - Multiple organ dysfunction syndrome [Recovering/Resolving]
